FAERS Safety Report 6355881-1 (Version None)
Quarter: 2009Q3

REPORT INFORMATION
  Report Type: 
  Country: None (occurrence: None)
  Receive Date: 20090910
  Receipt Date: 20090910
  Transmission Date: 20100115
  Serious: Yes (Life-Threatening, Hospitalization)
  Sender: FDA-Public Use
  Company Number: None

PATIENT
  Age: 35 Year
  Sex: Female

DRUGS (1)
  1. ASACOL [Suspect]
     Indication: COLITIS ULCERATIVE
     Dosage: 1 PO TID.
     Route: 048

REACTIONS (4)
  - BRADYCARDIA [None]
  - EXTRASYSTOLES [None]
  - HYPOTENSION [None]
  - PALPITATIONS [None]
